FAERS Safety Report 24737101 (Version 1)
Quarter: 2024Q4

REPORT INFORMATION
  Report Type: Spontaneous
  Country: US (occurrence: None)
  Receive Date: 20241213
  Receipt Date: 20241213
  Transmission Date: 20250115
  Serious: Yes (Death, Hospitalization)
  Sender: Public
  Company Number: None

PATIENT
  Age: 81 Year
  Sex: Male

DRUGS (1)
  1. LENALIDOMIDE [Suspect]
     Active Substance: LENALIDOMIDE
     Indication: Plasma cell myeloma
     Dosage: 10MG QD ORAL
     Route: 048
     Dates: start: 20190116, end: 20241024

REACTIONS (9)
  - Sepsis [None]
  - Nonspecific reaction [None]
  - Acute myocardial infarction [None]
  - Atrial fibrillation [None]
  - Metabolic encephalopathy [None]
  - Acute kidney injury [None]
  - Dehydration [None]
  - Lactic acidosis [None]
  - General physical health deterioration [None]

NARRATIVE: CASE EVENT DATE: 20241120
